FAERS Safety Report 24651094 (Version 1)
Quarter: 2024Q4

REPORT INFORMATION
  Report Type: Spontaneous
  Country: US (occurrence: US)
  Receive Date: 20241122
  Receipt Date: 20241122
  Transmission Date: 20250115
  Serious: Yes (Hospitalization)
  Sender: PACIRA
  Company Number: US-ORG100016242-2024000670

PATIENT
  Sex: Female

DRUGS (2)
  1. EXPAREL [Suspect]
     Active Substance: BUPIVACAINE
     Indication: Metabolic surgery
     Dosage: 10 ML VIAL
     Route: 065
     Dates: start: 20241111, end: 20241111
  2. ZYNRELEF [Suspect]
     Active Substance: BUPIVACAINE\MELOXICAM
     Indication: Metabolic surgery
     Dosage: 600 MG MELOXICAM AND 200 MG BUPIVACAINE
     Route: 065
     Dates: start: 20241111, end: 20241111

REACTIONS (2)
  - Hospitalisation [Unknown]
  - Labelled drug-drug interaction medication error [Unknown]

NARRATIVE: CASE EVENT DATE: 20241111
